FAERS Safety Report 7656030-X (Version None)
Quarter: 2011Q3

REPORT INFORMATION
  Report Type: 
  Country: None (occurrence: None)
  Receive Date: 20110804
  Receipt Date: 20110726
  Transmission Date: 20111222
  Serious: Yes (Death, Hospitalization)
  Sender: FDA-Public Use
  Company Number: US-ROCHE-789685

PATIENT
  Sex: Male

DRUGS (14)
  1. PROPRANOLOL [Concomitant]
     Dates: start: 20100301
  2. MEGAVITAMIN [Concomitant]
  3. VICODIN [Concomitant]
     Dates: start: 20101208, end: 20101208
  4. BENZONATATE [Concomitant]
     Dates: start: 20101029
  5. RIBAVIRIN [Suspect]
     Indication: HEPATITIS C
     Route: 048
     Dates: start: 20100920, end: 20110411
  6. BLINDED BMS-790052 (HCV NS5A INHIBITOR) [Suspect]
     Indication: HEPATITIS C
     Route: 048
     Dates: start: 20100910, end: 20110304
  7. TYLENOL-500 [Concomitant]
     Dates: start: 20101016
  8. PEGINTERFERON ALFA-2A [Suspect]
     Indication: HEPATITIS C
     Dosage: DOSE REPORTED AS: 180 MICROGRAM 1 DAY
     Route: 058
     Dates: start: 20100920, end: 20110411
  9. SPIRONOLACTONE [Concomitant]
     Dates: start: 20100301
  10. LANSOPRAZOLE [Concomitant]
     Dates: start: 20100301, end: 20100824
  11. DILAUDID [Concomitant]
     Dates: start: 20101208, end: 20101208
  12. RANITIDINE [Concomitant]
     Dates: start: 20100920
  13. URSO 250 [Concomitant]
     Dates: start: 20110502
  14. CLINDAMYCIN [Concomitant]
     Dates: start: 20101208, end: 20110103

REACTIONS (7)
  - SEPSIS [None]
  - ASPARTATE AMINOTRANSFERASE INCREASED [None]
  - PERITONITIS BACTERIAL [None]
  - ENCEPHALOPATHY [None]
  - RENAL FAILURE [None]
  - ALANINE AMINOTRANSFERASE INCREASED [None]
  - BLOOD BILIRUBIN INCREASED [None]
